FAERS Safety Report 9642978 (Version 2)
Quarter: 2013Q4

REPORT INFORMATION
  Report Type: Spontaneous
  Country: IT (occurrence: IT)
  Receive Date: 20131024
  Receipt Date: 20131213
  Transmission Date: 20140711
  Serious: Yes (Life-Threatening)
  Sender: FDA-Public Use
  Company Number: IT-SA-2013SA104079

PATIENT
  Age: 88 Year
  Sex: Female
  Weight: 90 kg

DRUGS (11)
  1. RIFADIN [Suspect]
     Indication: STAPHYLOCOCCAL SEPSIS
     Route: 048
     Dates: start: 20130708, end: 20130820
  2. FUROSEMIDE [Concomitant]
     Indication: HYPERTENSION
     Route: 048
     Dates: start: 20120101, end: 20130822
  3. LORAZEPAM [Concomitant]
     Route: 048
  4. CALCITRIOL [Concomitant]
     Route: 048
  5. OMEPRAZOLE [Concomitant]
  6. ALLOPURINOL [Concomitant]
  7. MINOCIN [Concomitant]
     Indication: STAPHYLOCOCCAL SEPSIS
     Dosage: STRENGTH: 100 MG
     Route: 048
     Dates: start: 20130708, end: 20130820
  8. CLEXANE [Concomitant]
     Indication: THROMBOSIS PROPHYLAXIS
     Dosage: STRENGTH: 4000 IU AXA
     Route: 058
     Dates: start: 20130410, end: 20130822
  9. CARDIOASPIRIN [Concomitant]
     Dosage: STRENGTH: 100 MG
     Route: 048
     Dates: start: 20120101, end: 20130822
  10. ALTIAZEM [Concomitant]
     Indication: HYPERTENSIVE CARDIOMYOPATHY
     Dosage: STRENGTH: 60 MG
     Route: 048
     Dates: start: 20120101, end: 20130822
  11. OXYBUTYNIN [Concomitant]
     Indication: HYPERTENSIVE CARDIOMYOPATHY
     Dosage: STRENGTH: 5 MG
     Route: 048
     Dates: start: 20120101, end: 20130822

REACTIONS (2)
  - Hepatic failure [Recovered/Resolved]
  - Hepatitis cholestatic [Recovered/Resolved]
